FAERS Safety Report 17575597 (Version 1)
Quarter: 2020Q1

REPORT INFORMATION
  Report Type: Spontaneous
  Country: US (occurrence: US)
  Receive Date: 20200324
  Receipt Date: 20200324
  Transmission Date: 20200409
  Serious: Yes (Hospitalization)
  Sender: FDA-Public Use
  Company Number: US-ASTRAZENECA-2020SE39263

PATIENT
  Age: 48 Year
  Sex: Male
  Weight: 98.9 kg

DRUGS (6)
  1. XELJANZ [Concomitant]
     Active Substance: TOFACITINIB CITRATE
     Dates: start: 20200312
  2. STERTRALINE [Concomitant]
  3. ROSUVASTATIN CALCIUM. [Concomitant]
     Active Substance: ROSUVASTATIN CALCIUM
     Route: 048
  4. BUPROPION. [Concomitant]
     Active Substance: BUPROPION
  5. OMEPRAZOLE. [Suspect]
     Active Substance: OMEPRAZOLE
     Route: 048
  6. CRESTOR [Suspect]
     Active Substance: ROSUVASTATIN CALCIUM
     Route: 048

REACTIONS (2)
  - Blood cholesterol abnormal [Not Recovered/Not Resolved]
  - Cardiac disorder [Not Recovered/Not Resolved]
